FAERS Safety Report 8153083-X (Version None)
Quarter: 2012Q1

REPORT INFORMATION
  Report Type: 
  Country: None (occurrence: None)
  Receive Date: 20120215
  Receipt Date: 20120203
  Transmission Date: 20120608
  Serious: Yes (Hospitalization)
  Sender: FDA-Public Use
  Company Number: UTC-015165

PATIENT
  Age: 40 Year
  Sex: Male

DRUGS (5)
  1. LETAIRIS [Concomitant]
  2. REMODULIN [Suspect]
     Indication: PULMONARY ARTERIAL HYPERTENSION
     Dosage: 38 CC/HR, IV, SUBCUTANEOUS
     Route: 058
     Dates: start: 20120101
  3. REMODULIN [Suspect]
     Indication: PULMONARY ARTERIAL HYPERTENSION
     Dosage: 38 CC/HR, IV, SUBCUTANEOUS
     Route: 058
     Dates: start: 20101104, end: 20120101
  4. DIURETICS (DIURETICS) [Concomitant]
  5. REVATIO [Concomitant]

REACTIONS (4)
  - CHEST PAIN [None]
  - SYNCOPE [None]
  - OEDEMA PERIPHERAL [None]
  - INFUSION SITE INFECTION [None]
